FAERS Safety Report 8821212 (Version 1)
Quarter: 2012Q4

REPORT INFORMATION
  Report Type: Report from Study
  Country: US (occurrence: US)
  Receive Date: 20121002
  Receipt Date: 20121002
  Transmission Date: 20130627
  Serious: Yes (Other)
  Sender: FDA-Public Use
  Company Number: US-ROCHE-1125553

PATIENT
  Sex: Female

DRUGS (2)
  1. RANIBIZUMAB [Suspect]
     Indication: AGE-RELATED MACULAR DEGENERATION
     Route: 050
     Dates: start: 2007, end: 2009
  2. WARFARIN [Concomitant]

REACTIONS (4)
  - Urinary bladder haemorrhage [Unknown]
  - Fungal infection [Unknown]
  - Neuropathy peripheral [Unknown]
  - Sinusitis [Unknown]
